FAERS Safety Report 7664198-4 (Version None)
Quarter: 2011Q3

REPORT INFORMATION
  Report Type: 
  Country: None (occurrence: None)
  Receive Date: 20110806
  Receipt Date: 20110117
  Transmission Date: 20111222
  Serious: No
  Sender: FDA-Public Use
  Company Number: US-ABBOTT-11P-163-0698520-00

PATIENT
  Sex: Male
  Weight: 90.8 kg

DRUGS (6)
  1. LISINOPRIL [Concomitant]
     Indication: BLOOD PRESSURE
  2. NIASPAN [Suspect]
     Dosage: 1500MG DAILY
     Dates: end: 20110117
  3. AMLODIPINE [Concomitant]
     Indication: BLOOD PRESSURE
  4. NIASPAN [Suspect]
     Indication: BLOOD CHOLESTEROL
     Dates: start: 20101201
  5. ZETIA [Concomitant]
     Indication: BLOOD CHOLESTEROL
  6. SIMVASTATIN [Concomitant]
     Indication: BLOOD CHOLESTEROL

REACTIONS (3)
  - FATIGUE [None]
  - FLUSHING [None]
  - PRURITUS [None]
